FAERS Safety Report 12621377 (Version 1)
Quarter: 2016Q3

REPORT INFORMATION
  Report Type: Spontaneous
  Country: US (occurrence: US)
  Receive Date: 20160804
  Receipt Date: 20160804
  Transmission Date: 20161109
  Serious: No
  Sender: FDA-Public Use
  Company Number: US-PAR PHARMACEUTICAL, INC-2015SCPR014245

PATIENT

DRUGS (2)
  1. DELESTROGEN [Suspect]
     Active Substance: ESTRADIOL VALERATE
     Indication: HORMONE REPLACEMENT THERAPY
     Dosage: UNK UNK, MONTHLY
     Route: 030
     Dates: start: 201405
  2. TESTOSTERONE CYPIONATE. [Suspect]
     Active Substance: TESTOSTERONE CYPIONATE
     Indication: HORMONE REPLACEMENT THERAPY
     Dosage: UNK UNK, MONTHLY
     Route: 030
     Dates: start: 201405

REACTIONS (6)
  - Vulvovaginal dryness [Recovering/Resolving]
  - Product quality issue [Unknown]
  - Drug ineffective [Unknown]
  - Libido decreased [Recovering/Resolving]
  - Irritability [Recovering/Resolving]
  - Sleep disorder [Recovering/Resolving]

NARRATIVE: CASE EVENT DATE: 2015
